FAERS Safety Report 5684809-2 (Version None)
Quarter: 2008Q1

REPORT INFORMATION
  Report Type: 
  Country: None (occurrence: None)
  Receive Date: 20080328
  Receipt Date: 20071004
  Transmission Date: 20080703
  Serious: Yes (Other)
  Sender: FDA-Public Use
  Company Number: US-BRISTOL-MYERS SQUIBB COMPANY-13931027

PATIENT
  Age: 87 Year
  Sex: Male

DRUGS (2)
  1. ERBITUX [Suspect]
  2. RADIATION THERAPY [Suspect]

REACTIONS (3)
  - MUCOSAL INFLAMMATION [None]
  - ORAL MUCOSAL ERYTHEMA [None]
  - RADIATION SKIN INJURY [None]
